FAERS Safety Report 24096170 (Version 1)
Quarter: 2024Q3

REPORT INFORMATION
  Report Type: Spontaneous
  Country: US (occurrence: US)
  Receive Date: 20240716
  Receipt Date: 20240716
  Transmission Date: 20241016
  Serious: No
  Sender: MERCK
  Company Number: US-ASTELLAS-2024US016102

PATIENT
  Sex: Male

DRUGS (5)
  1. KEYTRUDA [Suspect]
     Active Substance: PEMBROLIZUMAB
  2. PADCEV [Suspect]
     Active Substance: ENFORTUMAB VEDOTIN-EJFV
     Dosage: UNK, ROUTE REPORTED AS INFUSION
  3. PADCEV [Suspect]
     Active Substance: ENFORTUMAB VEDOTIN-EJFV
     Dosage: COURSE 11 DAY 1; ROUTE REPORTED AS INFUSION
     Dates: start: 20240530
  4. GEMCITABINE [Concomitant]
     Active Substance: GEMCITABINE
     Dosage: UNK
     Dates: start: 202309, end: 202311
  5. CISPLATIN [Concomitant]
     Active Substance: CISPLATIN
     Dosage: UNK
     Dates: start: 202309, end: 202311

REACTIONS (1)
  - Hyperglycaemia [Unknown]
